FAERS Safety Report 16410058 (Version 1)
Quarter: 2019Q2

REPORT INFORMATION
  Report Type: Report from Study
  Country: DZ (occurrence: DZ)
  Receive Date: 20190610
  Receipt Date: 20190610
  Transmission Date: 20190711
  Serious: Yes (Death, Other)
  Sender: FDA-Public Use
  Company Number: DZ-JNJFOC-20190604416

PATIENT

DRUGS (2)
  1. REOPRO [Suspect]
     Active Substance: ABCIXIMAB
     Indication: PERCUTANEOUS CORONARY INTERVENTION
     Route: 022
  2. REOPRO [Suspect]
     Active Substance: ABCIXIMAB
     Indication: PERCUTANEOUS CORONARY INTERVENTION
     Route: 042

REACTIONS (12)
  - Death [Fatal]
  - Vascular stent thrombosis [Unknown]
  - Cerebrovascular accident [Unknown]
  - Renal failure [Unknown]
  - Incorrect route of product administration [Unknown]
  - Thrombocytopenia [Unknown]
  - Off label use [Unknown]
  - Cardiac death [Fatal]
  - Myocardial infarction [Unknown]
  - Vascular operation [Unknown]
  - Haemorrhage [Unknown]
  - Cardiac failure [Unknown]
